FAERS Safety Report 5803613-5 (Version None)
Quarter: 2008Q3

REPORT INFORMATION
  Report Type: 
  Country: None (occurrence: None)
  Receive Date: 20080708
  Receipt Date: 20080627
  Transmission Date: 20090109
  Serious: Yes (Disabling)
  Sender: FDA-Public Use
  Company Number: AU-PFIZER INC-2008048314

PATIENT
  Sex: Male
  Weight: 66 kg

DRUGS (10)
  1. CHANTIX [Suspect]
     Indication: SMOKING CESSATION THERAPY
     Route: 048
     Dates: start: 20080401, end: 20080428
  2. VENTOLIN [Concomitant]
  3. ALVESCO [Concomitant]
  4. SEREVENT [Concomitant]
  5. IPRATROPIUM BROMIDE [Concomitant]
  6. FOLIC ACID [Concomitant]
  7. SPIRIVA [Concomitant]
  8. RABEPRAZOLE SODIUM [Concomitant]
  9. MOBIC [Concomitant]
  10. ASTRIX [Concomitant]

REACTIONS (10)
  - BALANCE DISORDER [None]
  - DRY MOUTH [None]
  - EARLY MORNING AWAKENING [None]
  - FATIGUE [None]
  - FEELING ABNORMAL [None]
  - INSOMNIA [None]
  - NAUSEA [None]
  - NIGHTMARE [None]
  - STRESS [None]
  - VOMITING [None]
